FAERS Safety Report 7830381-8 (Version None)
Quarter: 2011Q4

REPORT INFORMATION
  Report Type: 
  Country: None (occurrence: None)
  Receive Date: 20111021
  Receipt Date: 20111013
  Transmission Date: 20120403
  Serious: Yes (Other)
  Sender: FDA-Public Use
  Company Number: NL-SANOFI-AVENTIS-2011SA067607

PATIENT
  Age: 58 Year
  Sex: Male
  Weight: 85 kg

DRUGS (3)
  1. CLOMIPRAMINE HYDROCHLORIDE [Concomitant]
     Route: 048
     Dates: start: 20110914
  2. PLAQUENIL [Suspect]
     Indication: RHEUMATOID ARTHRITIS
     Route: 048
     Dates: start: 20100115, end: 20111007
  3. ZYPREXA [Concomitant]
     Route: 048
     Dates: start: 20090423

REACTIONS (1)
  - DEPRESSION [None]
